FAERS Safety Report 25764547 (Version 1)
Quarter: 2025Q3

REPORT INFORMATION
  Report Type: Spontaneous
  Country: US (occurrence: US)
  Receive Date: 20250905
  Receipt Date: 20250905
  Transmission Date: 20251021
  Serious: No
  Sender: DOMPE FARMACEUTICI
  Company Number: US-FARMAPROD-202501-0212

PATIENT
  Sex: Female

DRUGS (9)
  1. OXERVATE [Suspect]
     Active Substance: CENEGERMIN-BKBJ
     Indication: Neurotrophic keratopathy
     Route: 047
     Dates: start: 20250108
  2. OXERVATE [Suspect]
     Active Substance: CENEGERMIN-BKBJ
  3. BLISOVI 24 FE [Concomitant]
     Active Substance: ETHINYL ESTRADIOL\NORETHINDRONE ACETATE
  4. FISH OIL [Concomitant]
     Active Substance: FISH OIL
  5. REFRESH OPTIVE [Concomitant]
     Active Substance: CARBOXYMETHYLCELLULOSE SODIUM\GLYCERIN
  6. RESTASIS [Concomitant]
     Active Substance: CYCLOSPORINE
  7. LUTEIN [Concomitant]
     Active Substance: LUTEIN
  8. VITAMIN D3 [Concomitant]
     Active Substance: CHOLECALCIFEROL
  9. ZYRTEC [Concomitant]
     Active Substance: CETIRIZINE HYDROCHLORIDE

REACTIONS (5)
  - Wrong technique in product usage process [Unknown]
  - Eye swelling [Unknown]
  - Eyelid irritation [Unknown]
  - Ocular discomfort [Unknown]
  - Madarosis [Unknown]
